FAERS Safety Report 24084657 (Version 2)
Quarter: 2024Q3

REPORT INFORMATION
  Report Type: Spontaneous
  Country: US (occurrence: US)
  Receive Date: 20240712
  Receipt Date: 20240715
  Transmission Date: 20241016
  Serious: Yes (Other)
  Sender: PFIZER
  Company Number: US-PFIZER INC-202400211059

PATIENT
  Age: 80 Year
  Sex: Female
  Weight: 61.23 kg

DRUGS (2)
  1. IBRANCE [Suspect]
     Active Substance: PALBOCICLIB
     Indication: Bone cancer
     Dosage: 125 MG TABLET FOR THREE WEEKS AND OFF ONE WEEK
     Route: 048
     Dates: start: 202305
  2. LETROZOLE [Concomitant]
     Active Substance: LETROZOLE
     Indication: Bone cancer
     Dosage: 2.5 MG, DAILY
     Route: 048

REACTIONS (6)
  - Swollen tongue [Not Recovered/Not Resolved]
  - Dysphagia [Not Recovered/Not Resolved]
  - Foreign body in throat [Not Recovered/Not Resolved]
  - Choking [Not Recovered/Not Resolved]
  - Productive cough [Unknown]
  - Oesophageal pain [Unknown]

NARRATIVE: CASE EVENT DATE: 20240101
